FAERS Safety Report 8507121-2 (Version None)
Quarter: 2012Q3

REPORT INFORMATION
  Report Type: 
  Country: None (occurrence: None)
  Receive Date: 20120712
  Receipt Date: 20120705
  Transmission Date: 20120928
  Serious: Yes (Hospitalization)
  Sender: FDA-Public Use
  Company Number: CA-SANOFI-AVENTIS-2011SA020717

PATIENT
  Age: 62 Year
  Sex: Female
  Weight: 75 kg

DRUGS (13)
  1. CALCIUM CARBONATE [Concomitant]
     Route: 048
     Dates: start: 20110113
  2. TAXOL [Concomitant]
     Indication: CHEMOTHERAPY
     Dates: start: 20110414
  3. FISH OIL [Concomitant]
     Indication: SUPPLEMENTATION THERAPY
  4. TAXOTERE [Suspect]
     Indication: BREAST CANCER
     Dosage: DOSAGE FORM: SOLUTION INTRAVENOUS
     Route: 042
     Dates: start: 20110317, end: 20110317
  5. VITAMIN D [Concomitant]
     Route: 048
     Dates: start: 20110113
  6. DEXAMETHASONE SODIUM POSPHATE [Concomitant]
     Dosage: IF NEEDED
     Route: 048
     Dates: start: 20110113
  7. GLUCOSAMINE [Concomitant]
     Route: 048
     Dates: start: 20110113
  8. DEXAMETHASONE SODIUM POSPHATE [Concomitant]
     Dosage: STARTING 1 DAY PRIOR TO DOCETAXEL THERAPY
     Route: 048
     Dates: start: 20110316
  9. ACETAMINOPHEN [Concomitant]
     Indication: ARTHRITIS
     Route: 048
     Dates: start: 20110113
  10. PERCOCET [Concomitant]
  11. ROSUVASTATIN [Concomitant]
     Route: 048
     Dates: start: 20110113
  12. PROCHLORPERAZINE [Concomitant]
     Dosage: IF NEEDED
     Route: 048
     Dates: start: 20110113
  13. ARTHROTEC [Concomitant]
     Dosage: 75 MG/200 MCG
     Route: 048
     Dates: start: 20110113

REACTIONS (5)
  - ANXIETY [None]
  - DYSPNOEA [None]
  - CHEST PAIN [None]
  - ORTHOPNOEA [None]
  - INTERSTITIAL LUNG DISEASE [None]
